FAERS Safety Report 17232759 (Version 1)
Quarter: 2020Q1

REPORT INFORMATION
  Report Type: Spontaneous
  Country: CA (occurrence: CA)
  Receive Date: 20200103
  Receipt Date: 20200103
  Transmission Date: 20200409
  Serious: Yes (Disabling)
  Sender: FDA-Public Use
  Company Number: CA-JNJFOC-20191245512

PATIENT
  Age: 58 Year
  Sex: Male
  Weight: 88.53 kg

DRUGS (1)
  1. TREMFYA [Suspect]
     Active Substance: GUSELKUMAB
     Indication: PSORIASIS
     Route: 058

REACTIONS (6)
  - Off label use [Unknown]
  - Lumbar vertebral fracture [Unknown]
  - Tinea infection [Unknown]
  - Headache [Unknown]
  - Arthralgia [Unknown]
  - Product use issue [Unknown]
